FAERS Safety Report 15183301 (Version 2)
Quarter: 2018Q3

REPORT INFORMATION
  Report Type: Spontaneous
  Country: JP (occurrence: JP)
  Receive Date: 20180723
  Receipt Date: 20180813
  Transmission Date: 20181010
  Serious: Yes (Life-Threatening, Hospitalization, Other)
  Sender: FDA-Public Use
  Company Number: JP-FERRINGPH-2018FE04029

PATIENT

DRUGS (8)
  1. GONAX [Suspect]
     Active Substance: DEGARELIX
     Indication: PROSTATE CANCER
     Dosage: 80 MG, MONTHLY
     Route: 058
     Dates: start: 20180511, end: 20180511
  2. NEXIUM [Concomitant]
     Active Substance: ESOMEPRAZOLE MAGNESIUM
     Dosage: UNK
     Dates: start: 20180406, end: 20180713
  3. TAMSULOSIN HYDROCHLORIDE. [Concomitant]
     Active Substance: TAMSULOSIN HYDROCHLORIDE
     Dosage: UNK
     Dates: start: 20180511, end: 20180713
  4. GONAX [Suspect]
     Active Substance: DEGARELIX
     Dosage: 240 MG, ONCE/SINGLE
     Route: 058
     Dates: start: 20180406, end: 20180406
  5. CELECOX [Concomitant]
     Active Substance: CELECOXIB
     Dosage: UNK
     Dates: start: 20180406, end: 20180713
  6. ZYTIGA [Suspect]
     Active Substance: ABIRATERONE ACETATE
     Indication: PROSTATE CANCER
     Dosage: 1000 MG, 1 TIME DAILY
     Route: 048
     Dates: start: 20180406, end: 20180608
  7. REBAMIPIDE [Concomitant]
     Active Substance: REBAMIPIDE
     Dosage: UNK
     Dates: start: 20180406, end: 20180713
  8. PREDONINE [Concomitant]
     Active Substance: PREDNISOLONE
     Dosage: UNK
     Dates: start: 20180406, end: 20180713

REACTIONS (1)
  - Interstitial lung disease [Recovering/Resolving]

NARRATIVE: CASE EVENT DATE: 20180604
